FAERS Safety Report 20018316 (Version 2)
Quarter: 2021Q4

REPORT INFORMATION
  Report Type: Spontaneous
  Country: None (occurrence: US)
  Receive Date: 20211101
  Receipt Date: 20211215
  Transmission Date: 20220303
  Serious: Yes (Other)
  Sender: FDA-Public Use
  Company Number: US-Ajanta Pharma USA Inc.-2121268

PATIENT
  Age: 63 Year
  Sex: Male

DRUGS (6)
  1. RANOLAZINE [Suspect]
     Active Substance: RANOLAZINE
     Indication: Angina pectoris
     Route: 048
  2. ATORVASTATIN CALCIUM [Concomitant]
     Active Substance: ATORVASTATIN CALCIUM
  3. METOPROLOL [Concomitant]
     Active Substance: METOPROLOL
  4. VALSARTAN [Concomitant]
     Active Substance: VALSARTAN
  5. OMEPRAZOLE [Concomitant]
     Active Substance: OMEPRAZOLE
  6. ASPIRIN [Concomitant]
     Active Substance: ASPIRIN

REACTIONS (11)
  - Angina pectoris [Recovering/Resolving]
  - Therapeutic product effect incomplete [Not Recovered/Not Resolved]
  - Malabsorption [Unknown]
  - Product residue present [Unknown]
  - Chest pain [Recovering/Resolving]
  - Aortic stenosis [Not Recovered/Not Resolved]
  - Chromaturia [Recovered/Resolved]
  - Dyspepsia [Not Recovered/Not Resolved]
  - Wrong technique in product usage process [Not Recovered/Not Resolved]
  - Myocardial ischaemia [Unknown]
  - Microvascular coronary artery disease [Not Recovered/Not Resolved]

NARRATIVE: CASE EVENT DATE: 20200116
